FAERS Safety Report 9440123 (Version 1)
Quarter: 2013Q3

REPORT INFORMATION
  Report Type: Spontaneous
  Country: FR (occurrence: FR)
  Receive Date: 20130805
  Receipt Date: 20130805
  Transmission Date: 20140515
  Serious: Yes (Hospitalization, Other)
  Sender: FDA-Public Use
  Company Number: FR-PFIZER INC-2013223741

PATIENT
  Age: 48 Year
  Sex: Female

DRUGS (2)
  1. ADVIL [Suspect]
     Indication: EAR INFECTION
     Dosage: 200 MG, 3X/DAY
     Route: 048
     Dates: start: 20130525, end: 20130528
  2. AUGMENTIN [Suspect]
     Indication: EAR INFECTION
     Dosage: 2 G DAILY
     Route: 048
     Dates: start: 20130525, end: 20130528

REACTIONS (1)
  - Brain empyema [Recovered/Resolved]
